FAERS Safety Report 9526611 (Version 2)
Quarter: 2013Q3

REPORT INFORMATION
  Report Type: Spontaneous
  Country: GB (occurrence: GB)
  Receive Date: 20130916
  Receipt Date: 20130923
  Transmission Date: 20140515
  Serious: Yes (Hospitalization)
  Sender: FDA-Public Use
  Company Number: PHHY2013GB098736

PATIENT
  Age: 75 Year
  Sex: Female

DRUGS (7)
  1. LEFLUNOMIDE [Suspect]
     Indication: RHEUMATOID ARTHRITIS
     Dosage: 10 MG EVERY ALTERNATE DAY
     Route: 048
     Dates: end: 20130830
  2. LEFLUNOMIDE [Suspect]
     Dosage: 10 MG, UNK
     Route: 048
     Dates: start: 20061103, end: 20130830
  3. BENDROFLUMETHIAZIDE [Concomitant]
     Indication: HYPERTENSION
     Dosage: 2.5 MG
     Route: 048
  4. CHLORDIAZEPOXIDE [Concomitant]
     Dosage: 5 G
     Route: 048
  5. LEVOTHYROXINE [Concomitant]
     Indication: HYPOTHYROIDISM
     Dosage: 100 UG
     Route: 048
  6. RAMIPRIL [Concomitant]
     Indication: HYPERTENSION
     Dosage: 2.5 MG, UNK
     Route: 048
  7. PARACETAMOL [Concomitant]
     Indication: ANALGESIC THERAPY
     Dosage: 1 G
     Route: 048

REACTIONS (4)
  - Panniculitis [Not Recovered/Not Resolved]
  - Pseudobulbar palsy [Not Recovered/Not Resolved]
  - General physical health deterioration [Not Recovered/Not Resolved]
  - Ulcer [Not Recovered/Not Resolved]
